FAERS Safety Report 21040868 (Version 1)
Quarter: 2022Q3

REPORT INFORMATION
  Report Type: Spontaneous
  Country: US (occurrence: US)
  Receive Date: 20220704
  Receipt Date: 20220704
  Transmission Date: 20221027
  Serious: No
  Sender: FDA-Public Use
  Company Number: US-SA-SAC20220624001375

PATIENT
  Sex: Female
  Weight: 95.2 kg

DRUGS (20)
  1. AUBAGIO [Suspect]
     Active Substance: TERIFLUNOMIDE
     Indication: Multiple sclerosis
     Dosage: 1 DF, QD
     Route: 048
     Dates: start: 2017
  2. SYNVISC [Concomitant]
     Active Substance: HYLAN G-F 20
  3. ALLEGRA [Concomitant]
     Active Substance: FEXOFENADINE HYDROCHLORIDE
  4. SYNTHROID [Concomitant]
     Active Substance: LEVOTHYROXINE SODIUM
  5. LYRICA [Concomitant]
     Active Substance: PREGABALIN
  6. TYLENOL [Concomitant]
     Active Substance: ACETAMINOPHEN
  7. ZINC [Concomitant]
     Active Substance: ZINC
  8. VITAMIN C [Concomitant]
     Active Substance: ASCORBIC ACID
  9. XANAX [Concomitant]
     Active Substance: ALPRAZOLAM
  10. PROPRANOLOL HYDROCHLORIDE [Concomitant]
     Active Substance: PROPRANOLOL HYDROCHLORIDE
  11. WELLBUTRIN XL [Concomitant]
     Active Substance: BUPROPION HYDROCHLORIDE
  12. NUVIGIL [Concomitant]
     Active Substance: ARMODAFINIL
  13. IBUPROFEN [Concomitant]
     Active Substance: IBUPROFEN
  14. VITAMIN D3 [Concomitant]
     Active Substance: CHOLECALCIFEROL
  15. CYANOCOBALAMIN [Concomitant]
     Active Substance: CYANOCOBALAMIN
  16. ATORVASTATIN CALCIUM [Concomitant]
     Active Substance: ATORVASTATIN CALCIUM
  17. MYRBETRIQ [Concomitant]
     Active Substance: MIRABEGRON
  18. ASPIRIN [Concomitant]
     Active Substance: ASPIRIN
  19. FISH OIL [Concomitant]
     Active Substance: FISH OIL
  20. DIVALPROEX SODIUM [Concomitant]
     Active Substance: DIVALPROEX SODIUM

REACTIONS (1)
  - Arthralgia [Unknown]
